FAERS Safety Report 11727326 (Version 4)
Quarter: 2017Q1

REPORT INFORMATION
  Report Type: Spontaneous
  Country: US (occurrence: US)
  Receive Date: 20151112
  Receipt Date: 20170127
  Transmission Date: 20170428
  Serious: Yes (Other)
  Sender: FDA-Public Use
  Company Number: US-PFIZER INC-2015370558

PATIENT
  Age: 67 Year
  Sex: Female
  Weight: 63 kg

DRUGS (11)
  1. ASPIRIN. [Concomitant]
     Active Substance: ASPIRIN
     Dosage: 0.81 UNK, UNK
  2. NEURONTIN [Concomitant]
     Active Substance: GABAPENTIN
     Dosage: UNK
  3. DILANTIN [Suspect]
     Active Substance: PHENYTOIN
     Indication: PARTIAL SEIZURES
     Dosage: 100 MG, 3X/DAY AT NIGHT BED TIME
     Dates: start: 201509, end: 201510
  4. METOPROLOL. [Concomitant]
     Active Substance: METOPROLOL
     Indication: ATRIAL FIBRILLATION
  5. DILANTIN [Suspect]
     Active Substance: PHENYTOIN
     Indication: SEIZURE
     Dosage: 300 MG, 1X/DAY AT NIGHT
     Dates: start: 2015, end: 2015
  6. METOPROLOL. [Concomitant]
     Active Substance: METOPROLOL
     Indication: CARDIAC DISORDER
     Dosage: UNK, 1X/DAY (25MG, HALF TABLET AT NIGHT)
  7. ASPIRIN. [Concomitant]
     Active Substance: ASPIRIN
     Dosage: 81 MG, 2X/DAY
  8. MELATONIN [Concomitant]
     Active Substance: MELATONIN
     Indication: SLEEP DISORDER
     Dosage: 1 DF, 1X/DAY (ONE AT BEDTIME)
  9. PROBENECID. [Concomitant]
     Active Substance: PROBENECID
     Indication: OESOPHAGEAL DISORDER
     Dosage: UNK
  10. FAMOTIDINE. [Concomitant]
     Active Substance: FAMOTIDINE
     Indication: OESOPHAGEAL DISORDER
     Dosage: 20 MG, 2X/DAY
  11. EQUATE NIGHT TIME SLEEP AID [Concomitant]
     Dosage: UNK

REACTIONS (36)
  - Cerebral palsy [Unknown]
  - Sleep disorder [Recovering/Resolving]
  - Toothache [Unknown]
  - Drug intolerance [Unknown]
  - Vomiting [Recovering/Resolving]
  - Hiccups [Recovered/Resolved]
  - Depression [Recovering/Resolving]
  - Nasal dryness [Unknown]
  - Balance disorder [Unknown]
  - Oesophageal disorder [Recovering/Resolving]
  - Facial pain [Unknown]
  - Vision blurred [Not Recovered/Not Resolved]
  - Tremor [Not Recovered/Not Resolved]
  - Headache [Not Recovered/Not Resolved]
  - Gait disturbance [Unknown]
  - Nausea [Not Recovered/Not Resolved]
  - Arthralgia [Unknown]
  - Insomnia [Recovering/Resolving]
  - Parkinsonism [Unknown]
  - Pain [Not Recovered/Not Resolved]
  - Dyskinesia [Not Recovered/Not Resolved]
  - Generalised tonic-clonic seizure [Unknown]
  - Speech disorder [Not Recovered/Not Resolved]
  - Activities of daily living impaired [Unknown]
  - Malaise [Not Recovered/Not Resolved]
  - Intracranial pressure increased [Not Recovered/Not Resolved]
  - Dysphonia [Not Recovered/Not Resolved]
  - Crying [Unknown]
  - Pain in jaw [Unknown]
  - Amnesia [Not Recovered/Not Resolved]
  - Eating disorder [Recovering/Resolving]
  - Dizziness [Not Recovered/Not Resolved]
  - Drug ineffective [Not Recovered/Not Resolved]
  - Dry mouth [Unknown]
  - Feeling abnormal [Unknown]
  - Decreased appetite [Recovering/Resolving]

NARRATIVE: CASE EVENT DATE: 201509
